FAERS Safety Report 7964263-8 (Version None)
Quarter: 2011Q4

REPORT INFORMATION
  Report Type: 
  Country: None (occurrence: None)
  Receive Date: 20111208
  Receipt Date: 20111205
  Transmission Date: 20120403
  Serious: Yes (Other)
  Sender: FDA-Public Use
  Company Number: US-VERTEX PHARMACEUTICALS INC.-AE-2011-001872

PATIENT
  Sex: Male

DRUGS (8)
  1. NORVASC [Concomitant]
  2. RIBAVIRIN [Concomitant]
     Indication: HEPATITIS C
     Route: 048
  3. ATENOLOL [Concomitant]
  4. PEGASYS [Concomitant]
     Indication: HEPATITIS C
     Route: 058
  5. LANTUS [Concomitant]
  6. CAPTOPRIL [Concomitant]
  7. HUMALOG [Concomitant]
  8. INCIVEK [Suspect]
     Indication: HEPATITIS C
     Route: 048
     Dates: start: 20110906

REACTIONS (4)
  - OSTEONECROSIS [None]
  - RENAL FAILURE ACUTE [None]
  - GANGRENE [None]
  - DEHYDRATION [None]
